FAERS Safety Report 25567365 (Version 1)
Quarter: 2025Q3

REPORT INFORMATION
  Report Type: Spontaneous
  Country: EU (occurrence: EU)
  Receive Date: 20250716
  Receipt Date: 20250716
  Transmission Date: 20251021
  Serious: Yes (Death)
  Sender: PURDUE
  Company Number: EU-NAPPMUNDI-GBR-2025-0127216

PATIENT
  Age: 41 Year
  Sex: Male

DRUGS (7)
  1. BUPRENORPHINE [Suspect]
     Active Substance: BUPRENORPHINE
     Indication: Drug use disorder
     Dosage: 128 MILLIGRAM, WEEKLY
     Route: 065
  2. BUPRENORPHINE [Suspect]
     Active Substance: BUPRENORPHINE
     Indication: Drug use disorder
     Dosage: 128 MILLIGRAM, WEEKLY
     Route: 065
  3. OXAZEPAM [Suspect]
     Active Substance: OXAZEPAM
     Indication: Hepatitis C
     Route: 065
  4. OXAZEPAM [Suspect]
     Active Substance: OXAZEPAM
     Indication: Attention deficit hyperactivity disorder
  5. CLONAZEPAM [Suspect]
     Active Substance: CLONAZEPAM
     Indication: Product used for unknown indication
     Route: 065
  6. AMPHETAMINE [Suspect]
     Active Substance: AMPHETAMINE
     Indication: Product used for unknown indication
     Route: 042
  7. HERBALS\TETRAHYDROCANNABINOL UNSPECIFIED [Suspect]
     Active Substance: HERBALS\TETRAHYDROCANNABINOL UNSPECIFIED
     Indication: Product used for unknown indication
     Route: 065

REACTIONS (2)
  - Stab wound [Fatal]
  - Off label use [Unknown]

NARRATIVE: CASE EVENT DATE: 20200101
